FAERS Safety Report 15302664 (Version 1)
Quarter: 2018Q3

REPORT INFORMATION
  Report Type: Spontaneous
  Country: US (occurrence: US)
  Receive Date: 20180821
  Receipt Date: 20180821
  Transmission Date: 20181010
  Serious: Yes (Hospitalization)
  Sender: FDA-Public Use
  Company Number: US-ELI_LILLY_AND_COMPANY-US201808007358

PATIENT
  Sex: Female

DRUGS (3)
  1. ERBITUX [Suspect]
     Active Substance: CETUXIMAB
     Indication: SQUAMOUS CELL CARCINOMA OF SKIN
     Dosage: 300 MG, WEEKLY (1/W)
     Route: 065
     Dates: start: 2015
  2. ERBITUX [Suspect]
     Active Substance: CETUXIMAB
     Dosage: 300 MG, WEEKLY (1/W)
     Route: 065
     Dates: start: 20180605
  3. ERBITUX [Suspect]
     Active Substance: CETUXIMAB
     Indication: SQUAMOUS CELL CARCINOMA OF HEAD AND NECK
     Dosage: 300 MG, WEEKLY (1/W)
     Route: 065
     Dates: start: 2017

REACTIONS (2)
  - Fistula [Unknown]
  - Dermatitis acneiform [Recovered/Resolved]
